FAERS Safety Report 6194599-5 (Version None)
Quarter: 2009Q2

REPORT INFORMATION
  Report Type: 
  Country: None (occurrence: None)
  Receive Date: 20090515
  Receipt Date: 20090515
  Transmission Date: 20091009
  Serious: Yes (Life-Threatening, Hospitalization)
  Sender: FDA-Public Use
  Company Number: None

PATIENT
  Age: 80 Year
  Sex: Male
  Weight: 99 kg

DRUGS (2)
  1. IODIXANOL [Suspect]
     Indication: CARDIAC OPERATION
     Dosage: ML ONCE IV
     Route: 042
     Dates: start: 20090506, end: 20090506
  2. IODIXANOL [Suspect]
     Indication: SURGERY
     Dosage: ML ONCE IV
     Route: 042
     Dates: start: 20090506, end: 20090506

REACTIONS (2)
  - RENAL FAILURE ACUTE [None]
  - STENT PLACEMENT [None]
